FAERS Safety Report 21241101 (Version 1)
Quarter: 2022Q3

REPORT INFORMATION
  Report Type: Spontaneous
  Country: ES (occurrence: ES)
  Receive Date: 20220823
  Receipt Date: 20220823
  Transmission Date: 20221027
  Serious: Yes (Death, Other)
  Sender: FDA-Public Use
  Company Number: ES-ETHYPHARM-2022001471

PATIENT
  Age: 22 Year
  Sex: Female

DRUGS (4)
  1. CIPROFLOXACIN [Suspect]
     Active Substance: CIPROFLOXACIN
     Indication: Bacterial infection
     Dosage: 400 MG/12
     Route: 065
  2. COLISTIN [Suspect]
     Active Substance: COLISTIN
     Indication: Multiple-drug resistance
     Dosage: 0.5 MIU
     Route: 034
  3. COLISTIN [Suspect]
     Active Substance: COLISTIN
     Dosage: 5 MILLION UNITS (MIU)/8 HOURS
  4. AMIKACIN [Suspect]
     Active Substance: AMIKACIN
     Indication: Bacterial infection
     Dosage: 15 MG/KG/24
     Route: 065

REACTIONS (2)
  - Hypoxia [Fatal]
  - Hyperhidrosis [Fatal]
